FAERS Safety Report 20888582 (Version 2)
Quarter: 2022Q4

REPORT INFORMATION
  Report Type: Spontaneous
  Country: US (occurrence: US)
  Receive Date: 20220529
  Receipt Date: 20221005
  Transmission Date: 20230113
  Serious: Yes (Death, Other)
  Sender: FDA-Public Use
  Company Number: US-SA-SAC20220525000684

PATIENT
  Age: 64 Year
  Sex: Female

DRUGS (1)
  1. ZANTAC [Suspect]
     Active Substance: RANITIDINE HYDROCHLORIDE
     Indication: Gastrooesophageal reflux disease
     Dosage: 150 MG, FREQUENCY: OTHER
     Dates: start: 201006, end: 201909

REACTIONS (4)
  - Oesophageal carcinoma [Fatal]
  - Renal cancer [Fatal]
  - Lung neoplasm malignant [Fatal]
  - Bladder cancer [Fatal]

NARRATIVE: CASE EVENT DATE: 20191001
